FAERS Safety Report 22183576 (Version 1)
Quarter: 2023Q2

REPORT INFORMATION
  Report Type: Spontaneous
  Country: US (occurrence: US)
  Receive Date: 20230406
  Receipt Date: 20230406
  Transmission Date: 20230722
  Serious: No
  Sender: FDA-Public Use
  Company Number: US-CARA THERAPEUTICS, INC.-2023-00059-US

PATIENT
  Age: 76 Year
  Sex: Male
  Weight: 83 kg

DRUGS (12)
  1. KORSUVA [Suspect]
     Active Substance: DIFELIKEFALIN ACETATE
     Indication: Pruritus
     Dosage: 0.8 ML, AT END OF DIALYSIS, THREE TIMES A WEEK (MONDAY, WEDNESDAY, FRIDAY)
     Route: 042
     Dates: start: 20221221, end: 20230106
  2. VENOFER [Concomitant]
     Active Substance: IRON SUCROSE
     Indication: Mineral supplementation
     Dosage: 100 MILLIGRAM, UNK
     Route: 065
  3. MIRCERA [Concomitant]
     Active Substance: METHOXY POLYETHYLENE GLYCOL-EPOETIN BETA
     Indication: Haemoglobin decreased
     Dosage: 75 MICROGRAM, Q TWO WEEKS
     Route: 065
  4. SENSIPAR [Concomitant]
     Active Substance: CINACALCET HYDROCHLORIDE
     Indication: Hypothyroidism
     Dosage: 60 MILLIGRAM, UNK
     Route: 065
  5. OMEPRAZOLE [Concomitant]
     Active Substance: OMEPRAZOLE
     Indication: Gastrooesophageal reflux prophylaxis
     Dosage: 20 MILLIGRAM, QD
     Route: 065
  6. ELIQUIS [Concomitant]
     Active Substance: APIXABAN
     Indication: Anticoagulant therapy
     Dosage: 2.5 MILLIGRAM, BID
     Route: 048
  7. ACYCLOVIR SODIUM [Concomitant]
     Active Substance: ACYCLOVIR SODIUM
     Indication: HIV test positive
     Dosage: 400 MILLIGRAM, QD
     Route: 065
  8. CARVEDILOL [Concomitant]
     Active Substance: CARVEDILOL
     Indication: Hypertension
     Dosage: 6.25 MILLIGRAM, Q 12 HOURS
     Route: 048
  9. ATORVASTATIN [Concomitant]
     Active Substance: ATORVASTATIN
     Indication: Blood cholesterol increased
     Dosage: 40 MILLIGRAM, Q NIGHT
     Route: 048
  10. AMLODIPINE [Concomitant]
     Active Substance: AMLODIPINE BESYLATE
     Indication: Blood pressure abnormal
     Dosage: 10 MILLIGRAM, QD
     Route: 065
  11. CALCITRIOL [Concomitant]
     Active Substance: CALCITRIOL
     Indication: Vitamin D
     Dosage: 1 MICROGRAM, UNKNOWN
     Route: 065
  12. TYLENOL [Concomitant]
     Active Substance: ACETAMINOPHEN
     Indication: Pain
     Dosage: UNK, PRN
     Route: 065

REACTIONS (4)
  - Blood pressure decreased [Recovering/Resolving]
  - Fall [Recovering/Resolving]
  - Mental status changes [Recovering/Resolving]
  - Dizziness [Recovering/Resolving]

NARRATIVE: CASE EVENT DATE: 20230106
